FAERS Safety Report 10398190 (Version 1)
Quarter: 2014Q3

REPORT INFORMATION
  Report Type: Spontaneous
  Country: US (occurrence: None)
  Receive Date: 20140818
  Receipt Date: 20140818
  Transmission Date: 20150326
  Serious: No
  Sender: FDA-Public Use
  Company Number: None

PATIENT
  Age: 36 Year
  Sex: Female
  Weight: 124.74 kg

DRUGS (1)
  1. BUPIVICAINE [Suspect]
     Active Substance: BUPIVACAINE
     Indication: CAESAREAN SECTION
     Dates: start: 20140724, end: 20140724

REACTIONS (1)
  - Drug ineffective [None]

NARRATIVE: CASE EVENT DATE: 20140724
